FAERS Safety Report 16799614 (Version 2)
Quarter: 2022Q4

REPORT INFORMATION
  Report Type: Spontaneous
  Country: FR (occurrence: FR)
  Receive Date: 20190912
  Receipt Date: 20221013
  Transmission Date: 20230113
  Serious: Yes (Hospitalization, Other)
  Sender: FDA-Public Use
  Company Number: None

PATIENT
  Age: 38 Year
  Sex: Female
  Weight: 65 kg

DRUGS (5)
  1. CYPROTERONE ACETATE [Suspect]
     Active Substance: CYPROTERONE ACETATE
     Indication: Polycystic ovaries
     Dosage: 21 DF, UNK
     Route: 048
     Dates: start: 200601, end: 201809
  2. YAZ [Suspect]
     Active Substance: DROSPIRENONE\ETHINYL ESTRADIOL
     Indication: Contraception
     Dosage: 1 DF, UNK
     Route: 048
  3. BENFLUOREX [Concomitant]
     Active Substance: BENFLUOREX
     Indication: Product used for unknown indication
     Dosage: UNK
     Route: 048
     Dates: start: 200910, end: 200912
  4. BENFLUOREX [Concomitant]
     Active Substance: BENFLUOREX
     Indication: Product used for unknown indication
     Route: 048
  5. BENFLUOREX [Concomitant]
     Active Substance: BENFLUOREX
     Indication: Product used for unknown indication
     Route: 048
     Dates: start: 200910, end: 200912

REACTIONS (7)
  - Meningioma [Unknown]
  - Headache [Recovered/Resolved]
  - Fatigue [Not Recovered/Not Resolved]
  - Dizziness [Unknown]
  - Visual impairment [Not Recovered/Not Resolved]
  - Headache [Not Recovered/Not Resolved]
  - Meningioma [Not Recovered/Not Resolved]

NARRATIVE: CASE EVENT DATE: 20170101
